FAERS Safety Report 15841056 (Version 8)
Quarter: 2019Q2

REPORT INFORMATION
  Report Type: Spontaneous
  Country: CA (occurrence: CA)
  Receive Date: 20190118
  Receipt Date: 20190522
  Transmission Date: 20190711
  Serious: Yes (Other)
  Sender: FDA-Public Use
  Company Number: CA-CELLTRION INC.-2017CA010094

PATIENT

DRUGS (14)
  1. ACETAMINOPHEN. [Concomitant]
     Active Substance: ACETAMINOPHEN
     Dosage: 325-650 MG 15-30 MINUTES PRIOR TO INFUSION
     Route: 048
     Dates: start: 20190109, end: 20190109
  2. METHYLPREDNISOLONE. [Concomitant]
     Active Substance: METHYLPREDNISOLONE
     Dosage: 60 MG, 15-30 MINUTES PRIOR TO INFUSION.
     Route: 042
     Dates: start: 20190109, end: 20190109
  3. BENADRYL [Concomitant]
     Active Substance: DIPHENHYDRAMINE HYDROCHLORIDE
     Dosage: 50 MG, UNK
     Route: 048
     Dates: start: 20190306
  4. METHYLPREDNISOLONE. [Concomitant]
     Active Substance: METHYLPREDNISOLONE
     Dosage: 60 MG, 15-30 MINUTES PRIOR TO INFUSION
     Route: 042
     Dates: start: 20190109
  5. INFLECTRA [Suspect]
     Active Substance: INFLIXIMAB-DYYB
     Dosage: 260 MG, EVERY 8 WEEKS
     Route: 042
     Dates: start: 20190109
  6. TYLENOL [Concomitant]
     Active Substance: ACETAMINOPHEN
     Dosage: UNK
  7. INFLECTRA [Suspect]
     Active Substance: INFLIXIMAB-DYYB
     Dosage: 260 MG, EVERY 8 WEEKS
     Route: 042
     Dates: start: 20180829
  8. INFLECTRA [Suspect]
     Active Substance: INFLIXIMAB-DYYB
     Dosage: 260 MG, EVERY 8 WEEKS
     Route: 042
     Dates: start: 20180109
  9. TYLENOL [Concomitant]
     Active Substance: ACETAMINOPHEN
     Dosage: 650 MG, UNK
     Route: 048
     Dates: start: 20190306
  10. DIPHENHYDRAMINE. [Concomitant]
     Active Substance: DIPHENHYDRAMINE
     Dosage: 25-50 MG 15-30 MINUTES PRIOR TO INFUSION
     Route: 042
     Dates: start: 20190109, end: 20190109
  11. METHYLPREDNISOLONE. [Concomitant]
     Active Substance: METHYLPREDNISOLONE
     Dosage: 60 MG, UNK
     Route: 042
     Dates: start: 20190306
  12. INFLECTRA [Suspect]
     Active Substance: INFLIXIMAB-DYYB
     Indication: PSORIATIC ARTHROPATHY
     Dosage: 260 MG, EVERY 0, 2, 6 WEEKS, THEN EVERY 8 WEEKS
     Route: 042
     Dates: start: 20161201, end: 20190306
  13. INFLECTRA [Suspect]
     Active Substance: INFLIXIMAB-DYYB
     Dosage: UNK
     Route: 042
     Dates: start: 20180705
  14. INFLECTRA [Suspect]
     Active Substance: INFLIXIMAB-DYYB
     Dosage: 260 MG, EVERY 8 WEEKS
     Route: 042
     Dates: start: 20190306, end: 20190306

REACTIONS (17)
  - Malaise [Unknown]
  - Lower respiratory tract infection [Not Recovered/Not Resolved]
  - Dyspnoea [Not Recovered/Not Resolved]
  - Headache [Unknown]
  - Heart rate irregular [Unknown]
  - Pneumonia [Unknown]
  - Oxygen saturation abnormal [Unknown]
  - Blood pressure fluctuation [Unknown]
  - Underdose [Unknown]
  - Erythema [Recovered/Resolved]
  - Hyperhidrosis [Unknown]
  - Condition aggravated [Unknown]
  - Chest pain [Not Recovered/Not Resolved]
  - Off label use [Unknown]
  - Respiratory rate increased [Recovered/Resolved]
  - Body temperature decreased [Unknown]
  - Nausea [Unknown]

NARRATIVE: CASE EVENT DATE: 20170720
